FAERS Safety Report 8709710 (Version 3)
Quarter: 2016Q4

REPORT INFORMATION
  Report Type: Spontaneous
  Country: US (occurrence: US)
  Receive Date: 20120806
  Receipt Date: 20161028
  Transmission Date: 20170207
  Serious: No
  Sender: FDA-Public Use
  Company Number: US-GLAXOSMITHKLINE-A0954368A

PATIENT
  Sex: Female

DRUGS (4)
  1. ADVAIR DISKUS [Suspect]
     Active Substance: FLUTICASONE PROPIONATE\SALMETEROL XINAFOATE
     Indication: PRODUCT USED FOR UNKNOWN INDICATION
     Dosage: 230/21 MCG
     Route: 065
     Dates: start: 20111020
  2. VENTOLIN [Concomitant]
     Active Substance: ALBUTEROL SULFATE
  3. ADVAIR DISKUS [Suspect]
     Active Substance: FLUTICASONE PROPIONATE\SALMETEROL XINAFOATE
     Indication: CHRONIC OBSTRUCTIVE PULMONARY DISEASE
     Dosage: 250/50 UG, 1 PUFF(S), QD
  4. ADVAIR DISKUS [Suspect]
     Active Substance: FLUTICASONE PROPIONATE\SALMETEROL XINAFOATE
     Indication: RESPIRATORY DISORDER
     Dosage: 100/50 UG
     Dates: start: 201111

REACTIONS (6)
  - Irritability [Unknown]
  - Aphonia [Unknown]
  - Pharyngeal disorder [Not Recovered/Not Resolved]
  - Gingival recession [Unknown]
  - Dysphonia [Not Recovered/Not Resolved]
  - Intentional underdose [Unknown]
